FAERS Safety Report 8790435 (Version 1)
Quarter: 2012Q4

REPORT INFORMATION
  Report Type: Spontaneous
  Country: US (occurrence: None)
  Receive Date: 20120911
  Receipt Date: 20120911
  Transmission Date: 20130627
  Serious: Yes (Death)
  Sender: FDA-Public Use
  Company Number: None

PATIENT
  Age: 78 Year
  Sex: Male
  Weight: 102.06 kg

DRUGS (13)
  1. PRADAXA [Suspect]
     Indication: CLOT BLOOD
     Route: 048
     Dates: start: 20120101, end: 20120403
  2. PRADAXA [Suspect]
     Indication: ATRIAL FIBRILLATION
     Route: 048
     Dates: start: 20120101, end: 20120403
  3. LOSARTAN [Concomitant]
  4. FLECAINIDE [Concomitant]
  5. HYDRALAZINE [Concomitant]
  6. FLUDROCORISONE [Concomitant]
  7. SERTRALINE - ZOLOFT [Concomitant]
  8. METOPROLOL SUCCINATE XL [Concomitant]
  9. ESOMEPRAZOLE - NEXIUM [Concomitant]
  10. METFORMIN [Concomitant]
  11. GLUCOSAMIDE-CHONDROITIN [Concomitant]
  12. ASPIRIN [Concomitant]
  13. FERROUS SULFATE [Concomitant]

REACTIONS (3)
  - Cerebral haemorrhage [None]
  - Brain injury [None]
  - Intracranial pressure increased [None]
